FAERS Safety Report 23877952 (Version 1)
Quarter: 2024Q2

REPORT INFORMATION
  Report Type: Spontaneous
  Country: US (occurrence: US)
  Receive Date: 20240521
  Receipt Date: 20240521
  Transmission Date: 20240716
  Serious: Yes (Other)
  Sender: FDA-Public Use
  Company Number: US-EYEPOINT PHARMACEUTICALS, INC.-US-EYP-24-00003

PATIENT
  Age: 4 Year
  Sex: Female

DRUGS (2)
  1. DEXYCU [Suspect]
     Active Substance: DEXAMETHASONE
     Indication: Eye inflammation
     Dosage: 517 MICROGRAM, SINGLE
     Route: 031
  2. DEXYCU [Suspect]
     Active Substance: DEXAMETHASONE
     Indication: Postoperative care

REACTIONS (1)
  - Iris atrophy [Unknown]
